FAERS Safety Report 16058623 (Version 1)
Quarter: 2019Q1

REPORT INFORMATION
  Report Type: Spontaneous
  Country: SE (occurrence: SE)
  Receive Date: 20190311
  Receipt Date: 20190311
  Transmission Date: 20190418
  Serious: Yes (Hospitalization)
  Sender: FDA-Public Use
  Company Number: SE-PFIZER INC-2001062001SE

PATIENT
  Age: 42 Year
  Sex: Female

DRUGS (3)
  1. SALAZOPYRIN EN [Suspect]
     Active Substance: SULFASALAZINE
     Indication: ARTHRITIS
     Dosage: UNK
     Dates: start: 20000822, end: 20000920
  2. KETOPROFEN. [Suspect]
     Active Substance: KETOPROFEN
     Indication: ARTHRITIS
     Dosage: UNK
     Dates: start: 199811, end: 199902
  3. VIOXX [Suspect]
     Active Substance: ROFECOXIB
     Indication: ARTHRITIS
     Dosage: 12.5 MG, DAILY
     Dates: start: 200001, end: 200002

REACTIONS (2)
  - Diarrhoea haemorrhagic [Not Recovered/Not Resolved]
  - Colitis [Not Recovered/Not Resolved]

NARRATIVE: CASE EVENT DATE: 20000920
